FAERS Safety Report 8831786 (Version 2)
Quarter: 2012Q4

REPORT INFORMATION
  Report Type: 
  Country: US (occurrence: US)
  Receive Date: 20121009
  Receipt Date: 20121204
  Transmission Date: 20130627
  Serious: No
  Sender: FDA-Public Use
  Company Number: US-ASTRAZENECA-2012SE76220

PATIENT
  Sex: Male

DRUGS (3)
  1. SYMBICORT PMDI [Suspect]
     Dosage: 320 MCG
     Route: 055
     Dates: start: 2011
  2. SYMBICORT PMDI [Suspect]
     Dosage: 160 MCG/4.5 MCG, 2 PUFFS BID
     Route: 055
  3. SYMBICORT PMDI [Suspect]
     Dosage: 160 MCG/4.5 MCG, 2 PUFFS AS NEEDED
     Route: 055

REACTIONS (3)
  - Dysphonia [Recovered/Resolved with Sequelae]
  - Pruritus [Recovered/Resolved with Sequelae]
  - Intentional drug misuse [Unknown]
